FAERS Safety Report 11271091 (Version 2)
Quarter: 2015Q3

REPORT INFORMATION
  Report Type: Spontaneous
  Country: US (occurrence: US)
  Receive Date: 20150714
  Receipt Date: 20150729
  Transmission Date: 20151125
  Serious: No
  Sender: FDA-Public Use
  Company Number: US-BAYER-2015-377461

PATIENT
  Age: 55 Year
  Sex: Male

DRUGS (1)
  1. GADAVIST [Suspect]
     Active Substance: GADOBUTROL
     Indication: NUCLEAR MAGNETIC RESONANCE IMAGING LIVER
     Dosage: 11 ML, ONCE
     Route: 042
     Dates: start: 20150706, end: 20150706

REACTIONS (4)
  - Product use issue [None]
  - Presyncope [Recovered/Resolved]
  - Nausea [None]
  - Vomiting [Recovered/Resolved]

NARRATIVE: CASE EVENT DATE: 20150706
